FAERS Safety Report 17669818 (Version 1)
Quarter: 2020Q2

REPORT INFORMATION
  Report Type: Spontaneous
  Country: US (occurrence: US)
  Receive Date: 20200415
  Receipt Date: 20200415
  Transmission Date: 20200713
  Serious: No
  Sender: FDA-Public Use
  Company Number: US-GLENMARK PHARMACEUTICALS-2019GMK043838

PATIENT

DRUGS (2)
  1. LEVOCETIRIZINE DIHYDROCHLORIDE TABLETS, 5MG [Suspect]
     Active Substance: LEVOCETIRIZINE DIHYDROCHLORIDE
     Indication: SEASONAL ALLERGY
     Dosage: 5 MG, OD
     Route: 048
     Dates: start: 2016
  2. LEVOCETIRIZINE DIHYDROCHLORIDE TABLETS, 5MG [Suspect]
     Active Substance: LEVOCETIRIZINE DIHYDROCHLORIDE
     Indication: SINUS DISORDER

REACTIONS (2)
  - Product use issue [Unknown]
  - Drug ineffective [Unknown]

NARRATIVE: CASE EVENT DATE: 2016
